FAERS Safety Report 8795306 (Version 3)
Quarter: 2014Q3

REPORT INFORMATION
  Report Type: Report from Study
  Country: US (occurrence: US)
  Receive Date: 20120918
  Receipt Date: 20140825
  Transmission Date: 20150326
  Serious: Yes (Death)
  Sender: FDA-Public Use
  Company Number: US-ROCHE-1129186

PATIENT
  Sex: Female
  Weight: 69 kg

DRUGS (3)
  1. AVASTIN [Suspect]
     Active Substance: BEVACIZUMAB
     Indication: BRAIN NEOPLASM MALIGNANT
  2. AVASTIN [Suspect]
     Active Substance: BEVACIZUMAB
     Indication: GLIOBLASTOMA
     Route: 042
     Dates: start: 20080213, end: 20080731
  3. CPT-11 [Concomitant]
     Active Substance: IRINOTECAN

REACTIONS (2)
  - Glioblastoma [Fatal]
  - Off label use [Unknown]
